FAERS Safety Report 20381385 (Version 1)
Quarter: 2022Q1

REPORT INFORMATION
  Report Type: Other
  Country: US (occurrence: None)
  Receive Date: 20220127
  Receipt Date: 20220127
  Transmission Date: 20220423
  Serious: No
  Sender: FDA-Public Use
  Company Number: US-ROCHE-3009108

PATIENT
  Age: 47 Year
  Sex: Female
  Weight: 93.070 kg

DRUGS (4)
  1. OCREVUS [Suspect]
     Active Substance: OCRELIZUMAB
     Indication: Multiple sclerosis relapse
     Dosage: DATE OF PREVIOUS INFUSION: 19/JUL/2019, DATE OF NEXT INFUSION: 17/JAN/2020
     Route: 042
     Dates: start: 2017
  2. BACLOFEN [Concomitant]
     Active Substance: BACLOFEN
     Indication: Muscle spasms
     Route: 048
     Dates: start: 2017
  3. BACLOFEN [Concomitant]
     Active Substance: BACLOFEN
     Indication: Pain
  4. OXCARBAZEPINE [Concomitant]
     Active Substance: OXCARBAZEPINE
     Indication: Muscle spasms
     Route: 048
     Dates: start: 2017

REACTIONS (1)
  - COVID-19 [Recovered/Resolved]

NARRATIVE: CASE EVENT DATE: 20220114
